FAERS Safety Report 4329244-4 (Version None)
Quarter: 2004Q1

REPORT INFORMATION
  Report Type: 
  Country: None (occurrence: None)
  Receive Date: 20040319
  Receipt Date: 20031120
  Transmission Date: 20041129
  Serious: No
  Sender: FDA-Public Use
  Company Number: US-JNJFOC-20031104687

PATIENT
  Sex: Female

DRUGS (2)
  1. ORTHO EVRA [Suspect]
     Indication: CONTRACEPTION
     Dosage: 1 DOSE(S), 3 IN 4 WEEK, TRANSDERMAL
     Route: 062
  2. ORTHO TRICYCLEN (NORGESTIMATE/ETHINYL ESTRADIOL) UNSPECIFIED [Suspect]
     Indication: CONTRACEPTION

REACTIONS (2)
  - ADVERSE DRUG REACTION [None]
  - UNEXPECTED THERAPEUTIC DRUG EFFECT [None]
